FAERS Safety Report 25300325 (Version 1)
Quarter: 2025Q2

REPORT INFORMATION
  Report Type: Spontaneous
  Country: US (occurrence: US)
  Receive Date: 20250512
  Receipt Date: 20250512
  Transmission Date: 20250717
  Serious: Yes (Life-Threatening, Other)
  Sender: GE HEALTHCARE
  Company Number: US-GE HEALTHCARE-2025CSU005497

PATIENT
  Sex: Male

DRUGS (1)
  1. OPTISON [Suspect]
     Active Substance: HUMAN ALBUMIN MICROSPHERES\PERFLUTREN
     Indication: Scan with contrast
     Route: 042

REACTIONS (4)
  - Swollen tongue [Recovered/Resolved]
  - Muscle twitching [Recovered/Resolved]
  - Burning sensation [Recovered/Resolved]
  - Pain [Recovered/Resolved]
